FAERS Safety Report 6574733-5 (Version None)
Quarter: 2010Q1

REPORT INFORMATION
  Report Type: 
  Country: None (occurrence: None)
  Receive Date: 20100209
  Receipt Date: 20100129
  Transmission Date: 20100710
  Serious: Yes (Hospitalization, Other)
  Sender: FDA-Public Use
  Company Number: JP-JNJFOC-20090307237

PATIENT
  Age: 29 Year
  Sex: Female
  Weight: 60 kg

DRUGS (15)
  1. REMICADE [Suspect]
     Indication: CROHN'S DISEASE
     Dosage: 5 INFUSIONS TOTAL
     Route: 042
     Dates: start: 20060301, end: 20090204
  2. REMICADE [Suspect]
     Route: 042
     Dates: start: 20060301, end: 20090204
  3. REMICADE [Suspect]
     Route: 042
     Dates: start: 20060301, end: 20090204
  4. REMICADE [Suspect]
     Route: 042
     Dates: start: 20060301, end: 20090204
  5. REMICADE [Suspect]
     Route: 042
     Dates: start: 20060301, end: 20090204
  6. REMICADE [Suspect]
     Route: 042
     Dates: start: 20060301, end: 20090204
  7. MAGNESIUM OXIDE [Concomitant]
     Indication: CONSTIPATION
     Dosage: ^2PAC^
     Route: 048
  8. DAI KENCHU TO [Concomitant]
     Indication: BOWEL MOVEMENT IRREGULARITY
     Dosage: ^3 PAC^
     Route: 048
  9. GLYCYRRHIZA [Concomitant]
     Indication: CONSTIPATION
     Dosage: ^2PAC^
     Route: 048
  10. PENTASA [Concomitant]
     Indication: CROHN'S DISEASE
     Dosage: DOSE ^12TAB^
     Route: 048
  11. PENTASA [Concomitant]
     Dosage: DOSE ^12TAB^
     Route: 048
  12. CHLOR-TRIMETON [Concomitant]
     Indication: PROPHYLAXIS
  13. DECADRON [Concomitant]
     Indication: PROPHYLAXIS
     Route: 048
  14. DECADRON [Concomitant]
     Route: 048
  15. DECADRON [Concomitant]
     Route: 048

REACTIONS (7)
  - ARTHRALGIA [None]
  - CHILLS [None]
  - DYSPNOEA [None]
  - GROIN PAIN [None]
  - INFUSION RELATED REACTION [None]
  - MALAISE [None]
  - MYALGIA [None]
